FAERS Safety Report 21091801 (Version 12)
Quarter: 2024Q1

REPORT INFORMATION
  Report Type: Other
  Country: DE (occurrence: None)
  Receive Date: 20220717
  Receipt Date: 20240208
  Transmission Date: 20240409
  Serious: No
  Sender: FDA-Public Use
  Company Number: DE-ROCHE-3138496

PATIENT
  Age: 41 Year
  Sex: Male
  Weight: 70 kg

DRUGS (21)
  1. OCREVUS [Suspect]
     Active Substance: OCRELIZUMAB
     Indication: Relapsing multiple sclerosis
     Route: 042
     Dates: start: 20180830, end: 20180911
  2. OCREVUS [Suspect]
     Active Substance: OCRELIZUMAB
     Route: 042
     Dates: start: 20190517
  3. BACLOFEN [Concomitant]
     Active Substance: BACLOFEN
     Indication: Muscle spasticity
     Dates: end: 201910
  4. LAMOTRIGINE [Concomitant]
     Active Substance: LAMOTRIGINE
     Indication: Muscle spasticity
     Route: 048
     Dates: start: 2015
  5. PFIZER-BIONTECH COVID-19 VACCINE [Concomitant]
     Active Substance: TOZINAMERAN
     Indication: COVID-19 prophylaxis
     Route: 030
     Dates: start: 20210511, end: 20210511
  6. PFIZER-BIONTECH COVID-19 VACCINE [Concomitant]
     Active Substance: TOZINAMERAN
     Route: 030
     Dates: start: 20210420, end: 20210420
  7. PREDNISOLONE [Concomitant]
     Active Substance: PREDNISOLONE
     Indication: Prophylaxis
     Route: 042
     Dates: start: 20190517, end: 20190517
  8. PREDNISOLONE [Concomitant]
     Active Substance: PREDNISOLONE
     Indication: Prophylaxis
     Route: 042
     Dates: start: 20180911, end: 20180911
  9. PREDNISOLONE [Concomitant]
     Active Substance: PREDNISOLONE
     Indication: Prophylaxis
     Route: 042
     Dates: start: 20180830, end: 20180830
  10. TIZANIDINE [Concomitant]
     Active Substance: TIZANIDINE
     Indication: Muscle spasticity
     Route: 048
     Dates: start: 2015, end: 201910
  11. TIZANIDINE [Concomitant]
     Active Substance: TIZANIDINE
     Route: 048
     Dates: start: 2015, end: 20190509
  12. BOTOX [Concomitant]
     Active Substance: ONABOTULINUMTOXINA
     Indication: Muscle spasticity
     Route: 030
  13. EBASTINE [Concomitant]
     Active Substance: EBASTINE
     Indication: Prophylaxis
     Route: 048
     Dates: start: 20180910, end: 20180912
  14. EBASTINE [Concomitant]
     Active Substance: EBASTINE
     Route: 048
     Dates: start: 20180829, end: 20180831
  15. EBASTINE [Concomitant]
     Active Substance: EBASTINE
     Route: 048
     Dates: start: 20190516, end: 20190518
  16. RANITIDINE HYDROCHLORIDE [Concomitant]
     Active Substance: RANITIDINE HYDROCHLORIDE
     Indication: Prophylaxis
     Route: 048
     Dates: start: 20180910, end: 20180912
  17. RANITIDINE HYDROCHLORIDE [Concomitant]
     Active Substance: RANITIDINE HYDROCHLORIDE
     Route: 048
     Dates: start: 20180829, end: 20180831
  18. RANITIDINE HYDROCHLORIDE [Concomitant]
     Active Substance: RANITIDINE HYDROCHLORIDE
     Route: 048
     Dates: start: 20190516, end: 20190518
  19. NABIXIMOLS [Concomitant]
     Active Substance: NABIXIMOLS
     Indication: Muscle spasticity
     Dates: start: 201910, end: 202109
  20. CHOLECALCIFEROL [Concomitant]
     Active Substance: CHOLECALCIFEROL
     Indication: Prophylaxis
     Route: 048
     Dates: start: 20140120
  21. TIZANIDINE HYDROCHLORIDE [Concomitant]
     Active Substance: TIZANIDINE HYDROCHLORIDE
     Indication: Muscle spasticity
     Route: 048
     Dates: start: 20211208

REACTIONS (8)
  - Restless legs syndrome [Not Recovered/Not Resolved]
  - Blood immunoglobulin G decreased [Not Recovered/Not Resolved]
  - Influenza like illness [Not Recovered/Not Resolved]
  - Blood immunoglobulin M decreased [Not Recovered/Not Resolved]
  - Anaemia [Not Recovered/Not Resolved]
  - Upper respiratory tract infection [Recovered/Resolved]
  - Head injury [Unknown]
  - COVID-19 [Recovered/Resolved]

NARRATIVE: CASE EVENT DATE: 20190304
